FAERS Safety Report 8975156 (Version 1)
Quarter: 2012Q4

REPORT INFORMATION
  Report Type: 
  Country: GB (occurrence: JP)
  Receive Date: 20121220
  Receipt Date: 20121220
  Transmission Date: 20130627
  Serious: No
  Sender: FDA-Public Use
  Company Number: JP-SANOFI-AVENTIS-2012SA091657

PATIENT
  Age: 34 Year
  Sex: Female

DRUGS (14)
  1. ARAVA [Suspect]
     Indication: RHEUMATOID ARTHRITIS
     Dosage: frequency-1 in 3 d
     Route: 048
     Dates: start: 20080305, end: 20090526
  2. TOCILIZUMAB [Suspect]
     Indication: RHEUMATOID ARTHRITIS
     Dosage: frequency-1 in 4 week
     Route: 041
     Dates: start: 20090119, end: 20090119
  3. TOCILIZUMAB [Suspect]
     Indication: RHEUMATOID ARTHRITIS
     Dosage: frequency-1 in 4 week
     Route: 042
     Dates: start: 20090216, end: 20090216
  4. TOCILIZUMAB [Suspect]
     Indication: RHEUMATOID ARTHRITIS
     Dosage: frequency-1 in 4 week
     Route: 042
     Dates: start: 20090316, end: 20090316
  5. TOCILIZUMAB [Suspect]
     Indication: RHEUMATOID ARTHRITIS
     Dosage: frequency-1 in 4 week
     Route: 042
     Dates: start: 20090413, end: 20090413
  6. TOCILIZUMAB [Suspect]
     Indication: RHEUMATOID ARTHRITIS
     Dosage: frequency-1 in 4 week
     Route: 042
     Dates: start: 20090707
  7. TOCILIZUMAB [Suspect]
     Indication: RHEUMATOID ARTHRITIS
     Dosage: frequency-1 in 4 week
     Route: 042
     Dates: start: 20090831
  8. PREDNISOLONE [Concomitant]
     Route: 048
     Dates: start: 20081005
  9. PREDNISOLONE [Concomitant]
     Route: 048
     Dates: start: 20081006, end: 20090427
  10. PREDNISOLONE [Concomitant]
     Route: 048
     Dates: start: 20090428
  11. LOXONIN [Concomitant]
     Route: 048
     Dates: start: 20081110
  12. SELBEX [Concomitant]
     Route: 048
  13. ZANTAC [Concomitant]
     Route: 048
     Dates: start: 20090209
  14. MEVALOTIN [Concomitant]
     Route: 048
     Dates: start: 20090428

REACTIONS (1)
  - Exposure during pregnancy [Unknown]
